FAERS Safety Report 7784406-9 (Version None)
Quarter: 2011Q3

REPORT INFORMATION
  Report Type: 
  Country: None (occurrence: None)
  Receive Date: 20110928
  Receipt Date: 20110927
  Transmission Date: 20111222
  Serious: Yes (Death, Other)
  Sender: FDA-Public Use
  Company Number: PHHY2007NL03769

PATIENT
  Sex: Male

DRUGS (4)
  1. ATARIZINE [Concomitant]
     Dosage: 10 MG, UNK
  2. TEMAZEPAM [Concomitant]
     Dosage: 10 MG
  3. ACETAMINOPHEN [Concomitant]
     Dosage: 1000 MG X 3
  4. SANDOSTATIN LAR [Suspect]
     Indication: PANCREATIC NEUROENDOCRINE TUMOUR
     Dosage: 20 MG, ONCE PER 4 WEEKS
     Route: 030
     Dates: start: 20051101

REACTIONS (2)
  - NEOPLASM MALIGNANT [None]
  - LIVER FUNCTION TEST ABNORMAL [None]
